FAERS Safety Report 9458425 (Version 3)
Quarter: 2013Q3

REPORT INFORMATION
  Report Type: Report from Study
  Country: DK (occurrence: DK)
  Receive Date: 20130814
  Receipt Date: 20130917
  Transmission Date: 20140515
  Serious: Yes (Other)
  Sender: FDA-Public Use
  Company Number: PHHY2013DK085360

PATIENT
  Age: 58 Year
  Sex: Female

DRUGS (6)
  1. ITRACONAZOLE [Suspect]
     Indication: FUNGAL INFECTION
     Route: 048
     Dates: start: 20130419, end: 20130425
  2. BOSUTINIB [Suspect]
     Indication: CHRONIC MYELOID LEUKAEMIA
     Dosage: 400 MG DAILY
     Route: 048
  3. PANTOLOC [Concomitant]
     Indication: DYSPEPSIA
     Route: 048
  4. DIURAL [Concomitant]
     Indication: FLUID RETENTION
     Route: 048
  5. KALIUMKLORID [Concomitant]
     Indication: MINERAL SUPPLEMENTATION
     Route: 048
  6. KALIUMKLORID [Concomitant]
     Indication: MINERAL SUPPLEMENTATION

REACTIONS (3)
  - Pericarditis [Recovering/Resolving]
  - Chest pain [Unknown]
  - Musculoskeletal pain [Unknown]
